FAERS Safety Report 5939314-2 (Version None)
Quarter: 2008Q4

REPORT INFORMATION
  Report Type: 
  Country: None (occurrence: None)
  Receive Date: 20081103
  Receipt Date: 20081020
  Transmission Date: 20090506
  Serious: Yes (Other)
  Sender: FDA-Public Use
  Company Number: AT-CELGENEUS-009-20785-08101312

PATIENT

DRUGS (1)
  1. THALIDOMIDE [Suspect]
     Dosage: 100-300 MG
     Route: 048

REACTIONS (8)
  - CONSTIPATION [None]
  - DIZZINESS [None]
  - FATIGUE [None]
  - HYPOTONIA [None]
  - NAUSEA [None]
  - NEUROPATHY PERIPHERAL [None]
  - PARAESTHESIA [None]
  - RASH [None]
